FAERS Safety Report 23201499 (Version 1)
Quarter: 2023Q4

REPORT INFORMATION
  Report Type: Report from Study
  Country: US (occurrence: US)
  Receive Date: 20231118
  Receipt Date: 20231118
  Transmission Date: 20240110
  Serious: Yes (Hospitalization, Other)
  Sender: FDA-Public Use
  Company Number: US-ALXN-A202305588AA

PATIENT
  Age: 60 Year
  Sex: Female

DRUGS (2)
  1. STRENSIQ [Suspect]
     Active Substance: ASFOTASE ALFA
     Indication: Hypophosphatasia
     Dosage: UNK
     Route: 065
  2. EFFEXOR [Concomitant]
     Active Substance: VENLAFAXINE HYDROCHLORIDE
     Indication: Product used for unknown indication
     Dosage: UNK
     Route: 065

REACTIONS (12)
  - Seizure [Unknown]
  - Hyponatraemia [Recovered/Resolved]
  - Lichen sclerosus [Unknown]
  - Mammogram abnormal [Unknown]
  - Thyroid calcification [Unknown]
  - Calcinosis [Unknown]
  - Blood potassium increased [Unknown]
  - Blood test abnormal [Unknown]
  - Blood chloride decreased [Unknown]
  - Intervertebral disc space narrowing [Not Recovered/Not Resolved]
  - Pain in extremity [Not Recovered/Not Resolved]
  - Spinal deformity [Not Recovered/Not Resolved]

NARRATIVE: CASE EVENT DATE: 20230401
